FAERS Safety Report 8386710-2 (Version None)
Quarter: 2012Q2

REPORT INFORMATION
  Report Type: 
  Country: None (occurrence: None)
  Receive Date: 20120525
  Receipt Date: 20120514
  Transmission Date: 20120825
  Serious: Yes (Other)
  Sender: FDA-Public Use
  Company Number: US-VALEANT-2012VX002260

PATIENT
  Sex: Female

DRUGS (6)
  1. EPIRUBICIN [Suspect]
     Indication: BREAST CANCER
     Route: 042
  2. TRASTUZUMAB [Suspect]
     Indication: BREAST CANCER
     Route: 042
  3. TRASTUZUMAB [Suspect]
     Route: 042
  4. FLUOROURACIL [Suspect]
     Indication: BREAST CANCER
     Route: 042
  5. PACLITAXEL [Suspect]
     Indication: BREAST CANCER
     Dosage: DOSE UNIT:U UNKNOWN
     Route: 042
  6. CYTOXAN [Suspect]
     Indication: BREAST CANCER
     Route: 042

REACTIONS (1)
  - NEUROPATHY PERIPHERAL [None]
